FAERS Safety Report 8505092-6 (Version None)
Quarter: 2012Q2

REPORT INFORMATION
  Report Type: 
  Country: None (occurrence: None)
  Receive Date: 20120405
  Receipt Date: 20100604
  Transmission Date: 20120825
  Serious: Yes (Hospitalization)
  Sender: FDA-Public Use
  Company Number: PHHY2010US37683

PATIENT
  Age: 83 Year
  Sex: Female

DRUGS (1)
  1. RECLAST [Suspect]
     Indication: OSTEOPOROSIS
     Dosage: INJECTION
     Dates: start: 20100517

REACTIONS (8)
  - DIARRHOEA [None]
  - NAUSEA [None]
  - HEADACHE [None]
  - ARTHRALGIA [None]
  - INFLUENZA LIKE ILLNESS [None]
  - PYREXIA [None]
  - MYALGIA [None]
  - VOMITING [None]
